FAERS Safety Report 24296069 (Version 2)
Quarter: 2024Q3

REPORT INFORMATION
  Report Type: Other
  Country: CA (occurrence: CA)
  Receive Date: 20240909
  Receipt Date: 20240924
  Transmission Date: 20241017
  Serious: Yes (Other)
  Sender: APOTEX
  Company Number: CA-APOTEX-2024AP010152

PATIENT
  Age: 69 Year
  Sex: Female

DRUGS (12)
  1. ROSUVASTATIN [Suspect]
     Active Substance: ROSUVASTATIN\ROSUVASTATIN CALCIUM
     Indication: Product used for unknown indication
     Dosage: UNK
     Route: 065
  2. MEPOLIZUMAB [Suspect]
     Active Substance: MEPOLIZUMAB
     Indication: Eosinophilic granulomatosis with polyangiitis
     Dosage: 300 MILLIGRAM, 1 EVERY 4 WEEKS
     Route: 058
  3. MEPOLIZUMAB [Suspect]
     Active Substance: MEPOLIZUMAB
     Indication: Eosinophilic granulomatosis with polyangiitis
     Dosage: 300 MILLIGRAM, ONCE EVERY 4 WEEKS
     Route: 058
  4. CEFIXIME [Concomitant]
     Active Substance: CEFIXIME
     Indication: Product used for unknown indication
     Dosage: 200 MILLIGRAM, QD
     Route: 048
  5. CEFIXIME [Concomitant]
     Active Substance: CEFIXIME
     Dosage: 400 MILLIGRAM, QD
     Route: 048
  6. CEFIXIME [Concomitant]
     Active Substance: CEFIXIME
     Dosage: 200 MILLIGRAM, Q.6H
     Route: 048
  7. CEFIXIME [Concomitant]
     Active Substance: CEFIXIME
     Dosage: 400 MILLIGRAM, Q.6H
     Route: 048
  8. INFLUENZA VIRUS VACCINE [Concomitant]
     Active Substance: INFLUENZA VIRUS VACCINE
     Indication: Prophylaxis
     Dosage: UNK
     Route: 065
  9. LIPITOR [Concomitant]
     Active Substance: ATORVASTATIN CALCIUM
     Indication: Prophylaxis
     Dosage: UNK
     Route: 065
  10. LOSARTAN POTASSIUM [Concomitant]
     Active Substance: LOSARTAN POTASSIUM
     Indication: Product used for unknown indication
     Dosage: 50 MILLIGRAM
     Route: 065
  11. PROLIA [Concomitant]
     Active Substance: DENOSUMAB
     Indication: Product used for unknown indication
     Dosage: UNK
     Route: 065
  12. UNSPECIFIED INGREDIENT [Concomitant]
     Active Substance: UNSPECIFIED INGREDIENT
     Indication: Product used for unknown indication
     Dosage: UNK
     Route: 065

REACTIONS (16)
  - Restless legs syndrome [Not Recovered/Not Resolved]
  - Asthma [Not Recovered/Not Resolved]
  - COVID-19 [Not Recovered/Not Resolved]
  - Cough [Not Recovered/Not Resolved]
  - Lower respiratory tract infection bacterial [Not Recovered/Not Resolved]
  - Malaise [Not Recovered/Not Resolved]
  - Palpitations [Not Recovered/Not Resolved]
  - Pneumonia [Not Recovered/Not Resolved]
  - Pulse abnormal [Not Recovered/Not Resolved]
  - Respiratory tract congestion [Not Recovered/Not Resolved]
  - SARS-CoV-2 test positive [Not Recovered/Not Resolved]
  - Sinusitis [Not Recovered/Not Resolved]
  - Upper respiratory tract infection [Not Recovered/Not Resolved]
  - Wheezing [Not Recovered/Not Resolved]
  - Musculoskeletal foreign body [Not Recovered/Not Resolved]
  - Dizziness [Not Recovered/Not Resolved]
